FAERS Safety Report 17794731 (Version 4)
Quarter: 2020Q2

REPORT INFORMATION
  Report Type: Spontaneous
  Country: US (occurrence: US)
  Receive Date: 20200515
  Receipt Date: 20200630
  Transmission Date: 20200714
  Serious: No
  Sender: FDA-Public Use
  Company Number: US-ASTRAZENECA-2020SE62120

PATIENT
  Age: 54 Year
  Sex: Male
  Weight: 158.8 kg

DRUGS (3)
  1. XIGDUO XR [Concomitant]
     Active Substance: DAPAGLIFLOZIN PROPANEDIOL\METFORMIN HYDROCHLORIDE
     Indication: DIABETES MELLITUS
     Dates: start: 202002
  2. BYDUREON BCISE [Suspect]
     Active Substance: EXENATIDE
     Indication: TYPE 2 DIABETES MELLITUS
     Route: 065
     Dates: start: 202002
  3. GLIMEPIRIDE. [Concomitant]
     Active Substance: GLIMEPIRIDE
     Indication: DIABETES MELLITUS
     Dates: start: 202002

REACTIONS (7)
  - Intentional device misuse [Unknown]
  - Drug delivery system issue [Unknown]
  - Injection site mass [Not Recovered/Not Resolved]
  - Injection site discolouration [Unknown]
  - Incorrect dose administered by device [Unknown]
  - Injection site pruritus [Recovering/Resolving]
  - Injection site haemorrhage [Recovered/Resolved]

NARRATIVE: CASE EVENT DATE: 202002
